FAERS Safety Report 9734283 (Version 1)
Quarter: 2013Q4

REPORT INFORMATION
  Report Type: Report from Study
  Country: US (occurrence: US)
  Receive Date: 20131205
  Receipt Date: 20131205
  Transmission Date: 20140711
  Serious: Yes (Other)
  Sender: FDA-Public Use
  Company Number: US-ROCHE-1310325

PATIENT
  Sex: Female
  Weight: 81.72 kg

DRUGS (5)
  1. TOCILIZUMAB [Suspect]
     Indication: ANKYLOSING SPONDYLITIS
     Route: 065
     Dates: start: 2012, end: 201306
  2. ADALIMUMAB [Suspect]
     Indication: ANKYLOSING SPONDYLITIS
     Route: 065
     Dates: start: 2008
  3. HYDROCHLOROTHIAZIDE [Concomitant]
     Indication: HYPERTENSION
  4. PREDNISONE [Concomitant]
  5. ZITHROMAX [Concomitant]

REACTIONS (6)
  - Thyroid neoplasm [Unknown]
  - Ovarian cyst [Recovered/Resolved]
  - Malignant melanoma [Recovered/Resolved]
  - Ankylosing spondylitis [Unknown]
  - Ephelides [Unknown]
  - Blood cholesterol increased [Unknown]
